FAERS Safety Report 5396839-9 (Version None)
Quarter: 2007Q3

REPORT INFORMATION
  Report Type: 
  Country: None (occurrence: None)
  Receive Date: 20070725
  Receipt Date: 20060823
  Transmission Date: 20080115
  Serious: No
  Sender: FDA-Public Use
  Company Number: US-AMGEN-KDL191220

PATIENT
  Sex: Female
  Weight: 82 kg

DRUGS (5)
  1. PROCRIT [Suspect]
     Indication: ANAEMIA
     Dates: start: 20060815, end: 20060823
  2. VITAMIN B-12 [Concomitant]
  3. HEPARIN-FRACTION [Concomitant]
  4. CELEBREX [Concomitant]
     Dates: start: 20060813, end: 20060823
  5. HYDROCHLOROTHIAZIDE [Concomitant]
     Dates: start: 20060813, end: 20060823

REACTIONS (1)
  - PLATELET COUNT INCREASED [None]
